FAERS Safety Report 7766601-8 (Version None)
Quarter: 2011Q3

REPORT INFORMATION
  Report Type: 
  Country: None (occurrence: None)
  Receive Date: 20110916
  Receipt Date: 20110906
  Transmission Date: 20111222
  Serious: Yes (Hospitalization)
  Sender: FDA-Public Use
  Company Number: 2011PL000132

PATIENT
  Age: 58 Year
  Sex: Female

DRUGS (2)
  1. IMURAN [Suspect]
     Indication: SARCOIDOSIS
     Dosage: 100 MG;QD
  2. OPIOIDS [Concomitant]

REACTIONS (3)
  - ACUTE HEPATIC FAILURE [None]
  - RENAL FAILURE ACUTE [None]
  - SEPSIS [None]
